FAERS Safety Report 15690645 (Version 1)
Quarter: 2018Q4

REPORT INFORMATION
  Report Type: Spontaneous
  Country: NL (occurrence: NL)
  Receive Date: 20181205
  Receipt Date: 20181205
  Transmission Date: 20190205
  Serious: Yes (Hospitalization)
  Sender: FDA-Public Use
  Company Number: NL-TEVA-2018-NL-981831

PATIENT
  Age: 68 Year
  Sex: Female

DRUGS (10)
  1. EZETIMIB TABLET, 10 MG (MILLIGRAM) [Suspect]
     Active Substance: EZETIMIBE
     Indication: HYPERCHOLESTEROLAEMIA
     Dosage: 10 MILLIGRAM DAILY; 1D1T
     Dates: start: 20180508, end: 20180526
  2. PARACETAMOL TABLET 1000MG [Concomitant]
     Dosage: 1-4X PER DAY 1 TABLET
     Dates: start: 20161027
  3. CLONAZEPAM TABLET 0.5MG [Concomitant]
     Dosage: 1 DOSAGE FORMS DAILY; 1X PER DAY 1 TABLET
     Dates: start: 20160331
  4. AMANTADINE CAPSULE 100MG (SYMMETREL 100MG CAPSULE) [Concomitant]
     Dosage: 100 MILLIGRAM DAILY; 1X PER DAY 1 TABLET
     Dates: start: 20170414
  5. MACROGOL/ZOUTEN (MOVIC/MOLAX/LAXT/GEN) [Concomitant]
     Dosage: 1 DOSAGE FORMS DAILY; 1X PER DAY 1 SACHET
     Dates: start: 20150709
  6. LEVODOPA/BENSERAZIDE CAPSULE MGA 100/125 MG (MADOPAR HBS 125 MG CAPS M [Concomitant]
     Dosage: 1 DOSAGE FORMS DAILY; 1X PER DAY 1 TABLET
     Dates: start: 20161208
  7. PANTOPRAZOL TABLET MSR 40MG [Concomitant]
     Active Substance: PANTOPRAZOLE SODIUM
     Dosage: 40 MILLIGRAM DAILY; 1X PER DAY 1 TABLET
     Dates: start: 20180828
  8. COLECALCIFEROL TABLET 800 IE [Concomitant]
     Dosage: 800 IU (INTERNATIONAL UNIT) DAILY; 1X PER DAY 1 TABLET
     Dates: start: 20160922
  9. LEVODOPA/BENSERAZIDE CAPSULE MGA 50/12.5 MG (MADOPAR 62.5 MG CAPSULE) [Concomitant]
     Dosage: 4 DOSAGE FORMS DAILY; 1X PER DAY 2 CAPSULES IN THE MORNING; 1X PER DAY 1 CAPSULE IN NOON; 1X PER DAY
     Dates: start: 20160617
  10. MELOXICAM TABLET 15 MG [Concomitant]
     Dosage: 15 MILLIGRAM DAILY; 1X PER DAY 1 TABLET
     Dates: start: 20180430

REACTIONS (2)
  - Oedema peripheral [Recovering/Resolving]
  - Dizziness [Recovered/Resolved]

NARRATIVE: CASE EVENT DATE: 20181028
